APPROVED DRUG PRODUCT: TRIAMCINOLONE ACETONIDE
Active Ingredient: TRIAMCINOLONE ACETONIDE
Strength: 0.025%
Dosage Form/Route: LOTION;TOPICAL
Application: A088450 | Product #001 | TE Code: AT
Applicant: PHARMOBEDIENT CONSULTING LLC
Approved: Apr 1, 1985 | RLD: No | RS: Yes | Type: RX